FAERS Safety Report 21661845 (Version 1)
Quarter: 2022Q4

REPORT INFORMATION
  Report Type: Report from Study
  Country: ZA (occurrence: ZA)
  Receive Date: 20221130
  Receipt Date: 20221130
  Transmission Date: 20230113
  Serious: Yes (Death)
  Sender: FDA-Public Use
  Company Number: ZA-BAYER-2022A163981

PATIENT
  Sex: Female

DRUGS (1)
  1. EYLEA [Suspect]
     Active Substance: AFLIBERCEPT
     Indication: Age-related macular degeneration
     Dosage: UNK,SOLUTION FOR INJECTION IN PRE-FILLED SYRINGE, STRENGTH : 40MG/ML
     Route: 031
     Dates: start: 20201113, end: 20201113

REACTIONS (1)
  - Death [Fatal]
